FAERS Safety Report 9739326 (Version 1)
Quarter: 2013Q4

REPORT INFORMATION
  Report Type: Spontaneous
  Country: US (occurrence: US)
  Receive Date: 20131209
  Receipt Date: 20131209
  Transmission Date: 20140711
  Serious: Yes (Hospitalization)
  Sender: FDA-Public Use
  Company Number: US-SA-2013SA127573

PATIENT
  Age: 46 Year
  Sex: Male
  Weight: 97.7 kg

DRUGS (9)
  1. ZALTRAP [Suspect]
     Indication: COLON CANCER METASTATIC
     Route: 042
     Dates: start: 20131203, end: 20131203
  2. GABAPENTIN [Concomitant]
     Route: 065
     Dates: start: 20131010
  3. LISINOPRIL [Concomitant]
  4. METOPROLOL [Concomitant]
  5. DOCUSATE [Concomitant]
  6. METFORMIN [Concomitant]
  7. FENOFIBRATE [Concomitant]
  8. PROMETHAZINE [Concomitant]
  9. FOLFOX-4 (FLUOROURACIL, FOLINIC ACID, OXALIPLATIN) [Concomitant]

REACTIONS (2)
  - Gastrointestinal disorder [Unknown]
  - Abdominal pain [Unknown]
